FAERS Safety Report 4313709-5 (Version None)
Quarter: 2004Q1

REPORT INFORMATION
  Report Type: 
  Country: None (occurrence: None)
  Receive Date: 20040305
  Receipt Date: 20031222
  Transmission Date: 20041129
  Serious: Yes (Death, Hospitalization, Other)
  Sender: FDA-Public Use
  Company Number: 200314295BCC

PATIENT
  Age: 73 Year
  Sex: Female
  Weight: 65.7716 kg

DRUGS (4)
  1. ORIGINAL BAYER ASPIRIN TABLETS (ACETYLSALICYLIC ACID) [Suspect]
     Indication: ARTHRALGIA
     Dosage: 325 MG, QD, ORAL
     Route: 048
     Dates: start: 20020101, end: 20031113
  2. ALEVE [Suspect]
     Indication: ARTHRALGIA
     Dosage: 220 MG, BID, ORAL
     Route: 048
     Dates: start: 20031014, end: 20031024
  3. ATACAND [Concomitant]
  4. HYDROCHLOROTHIAZIDE [Concomitant]

REACTIONS (6)
  - ABDOMINAL MASS [None]
  - ABDOMINAL PAIN [None]
  - ANAEMIA [None]
  - GASTRIC HAEMORRHAGE [None]
  - GASTRIC OUTLET OBSTRUCTION [None]
  - SEPTIC SHOCK [None]
